FAERS Safety Report 14502857 (Version 1)
Quarter: 2018Q1

REPORT INFORMATION
  Report Type: Spontaneous
  Country: JP (occurrence: JP)
  Receive Date: 20180208
  Receipt Date: 20180208
  Transmission Date: 20180509
  Serious: Yes (Hospitalization)
  Sender: FDA-Public Use
  Company Number: JP-ROCHE-2070450

PATIENT
  Age: 6 Decade
  Sex: Male

DRUGS (1)
  1. ACTEMRA [Suspect]
     Active Substance: TOCILIZUMAB
     Indication: RHEUMATOID ARTHRITIS
     Route: 058
     Dates: start: 20160801

REACTIONS (3)
  - Vascular endothelial growth factor overexpression [Unknown]
  - Neuropathy peripheral [Not Recovered/Not Resolved]
  - CSF protein increased [Not Recovered/Not Resolved]

NARRATIVE: CASE EVENT DATE: 20171122
